FAERS Safety Report 4716259-7 (Version None)
Quarter: 2005Q2

REPORT INFORMATION
  Report Type: 
  Country: None (occurrence: None)
  Receive Date: 20050630
  Receipt Date: 20050412
  Transmission Date: 20051028
  Serious: Yes (Hospitalization, Other)
  Sender: FDA-Public Use
  Company Number: USA050495412

PATIENT
  Sex: Female

DRUGS (5)
  1. HUMALOG MIX 75/25 [Suspect]
     Dosage: 30 U/2 DAY
     Dates: start: 19980101, end: 20050411
  2. HUMULIN R [Suspect]
  3. LANTUS [Concomitant]
  4. GLUCOSE, SERUM/31 MILLIGRAM/DECILITER [Concomitant]
  5. GLUCOSE, SERUM/80 MILLIGRAM/DECILITER [Concomitant]

REACTIONS (8)
  - BLOOD GLUCOSE FLUCTUATION [None]
  - BLOOD GLUCOSE INCREASED [None]
  - FIBROMYALGIA [None]
  - HAEMATEMESIS [None]
  - HYPOGLYCAEMIA UNAWARENESS [None]
  - MYOCARDIAL INFARCTION [None]
  - POLYMYALGIA RHEUMATICA [None]
  - THYROID DISORDER [None]
